FAERS Safety Report 19786285 (Version 1)
Quarter: 2021Q3

REPORT INFORMATION
  Report Type: Spontaneous
  Country: NL (occurrence: NL)
  Receive Date: 20210903
  Receipt Date: 20210903
  Transmission Date: 20211014
  Serious: Yes (Life-Threatening)
  Sender: FDA-Public Use
  Company Number: NL-TEVA-2021-NL-1947786

PATIENT
  Sex: Female
  Weight: 72 kg

DRUGS (8)
  1. OXALIPLATINE INFOPL CONC 5MG/ML / BRAND NAME NOT SPECIFIED [Suspect]
     Active Substance: OXALIPLATIN
     Indication: COLON CANCER
     Dosage: 50% OF NORMAL DOSE CAPOX?B CURE
     Route: 065
     Dates: start: 20210709, end: 20210729
  2. DEXAMETHASON TABLET  4MG / BRAND NAME NOT SPECIFIED [Concomitant]
     Dosage: 8MG, THERAPY START AND END DATE: ASKU
  3. CAPECITABINE TABLET FO 300MG / BRAND NAME NOT SPECIFIED [Concomitant]
     Dosage: 800MG, THERAPY START AND END DATE: ASKU
  4. MACROGOL/ZOUTEN PDR V DRANK (MOVIC/MOLAX/LAXT/GEN) / MOVICOLON POEDER [Concomitant]
     Dosage: FOR DRINK, THERAPY START AND END DATE: ASKU
  5. METOCLOPRAMIDE 10MG / BRAND NAME NOT SPECIFIED [Concomitant]
     Dosage: 10 MG, THERAPY START AND END DATE: ASKU
  6. METOCLOPRAMIDE 10MG / BRAND NAME NOT SPECIFIED [Concomitant]
     Dosage: 10 MG, THERAPY START AND END DATE: ASKU
  7. ONDANSETRON SMELTTABLET 8MG / BRAND NAME NOT SPECIFIED [Concomitant]
     Dosage: MELTING, 8 MG, THERAPY START AND END DATE: ASKU
  8. PANTOPRAZOL TABLET MSR 40MG / BRAND NAME NOT SPECIFIED [Concomitant]
     Active Substance: PANTOPRAZOLE
     Dosage: 40 MG, THERAPY START AND END DATE: ASKU

REACTIONS (2)
  - Anaphylactic reaction [Recovered/Resolved]
  - Laryngospasm [Recovered/Resolved]
